FAERS Safety Report 18236985 (Version 1)
Quarter: 2020Q3

REPORT INFORMATION
  Report Type: Spontaneous
  Country: NL (occurrence: NL)
  Receive Date: 20200907
  Receipt Date: 20200907
  Transmission Date: 20201103
  Serious: Yes (Hospitalization, Other)
  Sender: FDA-Public Use
  Company Number: NL-AUROBINDO-AUR-APL-2020-046733

PATIENT
  Age: 39 Year
  Sex: Male
  Weight: 61 kg

DRUGS (14)
  1. TRAMADOL 50 MG CAPSULES [Suspect]
     Active Substance: TRAMADOL
     Indication: PYELONEPHRITIS
     Dosage: 50 MILLIGRAM (ZN 1 PIECE, 50 MG 3 DAYS)
     Route: 065
     Dates: start: 2020, end: 20200816
  2. AMILORIDE HCL;HYDROCHLOROTHIAZIDE [Concomitant]
     Indication: PRODUCT USED FOR UNKNOWN INDICATION
     Dosage: 1 DOSAGE FORM (TABLET, 5/50 MG (MILLIGRAM))
     Route: 065
  3. PRAMIPEXOLE. [Concomitant]
     Active Substance: PRAMIPEXOLE
     Indication: PRODUCT USED FOR UNKNOWN INDICATION
     Dosage: 0.12 MILLIGRAM (TABLET, 0,125 MG (MILLIGRAM))
     Route: 065
  4. ALPRAZOLAM. [Concomitant]
     Active Substance: ALPRAZOLAM
     Indication: PRODUCT USED FOR UNKNOWN INDICATION
     Dosage: 1 MILLIGRAM (MODIFIED?RELEASE TABLET, 1 MG (MILLIGRAM))
     Route: 065
  5. LEVOTHYROXINE. [Concomitant]
     Active Substance: LEVOTHYROXINE
     Indication: PRODUCT USED FOR UNKNOWN INDICATION
     Dosage: 150 MICROGRAM (TABLET, 150 ?G (MICROGRAM))
     Route: 065
  6. ISENTRESS [Concomitant]
     Active Substance: RALTEGRAVIR POTASSIUM
     Indication: PRODUCT USED FOR UNKNOWN INDICATION
     Dosage: 400 MILLIGRAM (TABLET, 400 MG (MILLIGRAM))
     Route: 065
  7. LORAZEPAM. [Concomitant]
     Active Substance: LORAZEPAM
     Indication: PRODUCT USED FOR UNKNOWN INDICATION
     Dosage: 1 MILLIGRAM (TABLET, 1 MG (MILLIGRAM))
     Route: 065
  8. TRAMADOL 50 MG CAPSULES [Suspect]
     Active Substance: TRAMADOL
     Indication: PAIN
  9. SERTRALINE FILM?COATED TABLETS 50 MG [Suspect]
     Active Substance: SERTRALINE HYDROCHLORIDE
     Indication: DEPRESSION
     Dosage: 50 MILLIGRAM, ONCE A DAY (1 DAILY 1 PIECE, 50 MG)
     Route: 065
     Dates: start: 2009
  10. MIDAZOLAM. [Concomitant]
     Active Substance: MIDAZOLAM
     Indication: PRODUCT USED FOR UNKNOWN INDICATION
     Dosage: 7.5 MILLIGRAM (TABLET, 7,5 MG (MILLIGRAM))
     Route: 065
  11. FLURAZEPAM [Concomitant]
     Active Substance: FLURAZEPAM HYDROCHLORIDE
     Indication: PRODUCT USED FOR UNKNOWN INDICATION
     Dosage: 15 MILLIGRAM (CAPSULE, 15 MG (MILLIGRAM))
     Route: 065
  12. KIVEXA [Concomitant]
     Active Substance: ABACAVIR SULFATE\LAMIVUDINE
     Indication: PRODUCT USED FOR UNKNOWN INDICATION
     Dosage: 1 DOSAGE FORM (TABLET, 600/300 MG (MILLIGRAM))
     Route: 065
  13. LITHIUMCARBONAAT [Suspect]
     Active Substance: LITHIUM CARBONATE
     Indication: BIPOLAR DISORDER
     Dosage: 800 MILLIGRAM, ONCE A DAY (1X PER DAY 2 PIECES, 400 MG)
     Route: 065
     Dates: start: 2009
  14. LORAZEPAM. [Concomitant]
     Active Substance: LORAZEPAM
     Indication: PRODUCT USED FOR UNKNOWN INDICATION
     Dosage: 2.5 MILLIGRAM (TABLET, 2,5 MG (MILLIGRAM))
     Route: 065

REACTIONS (1)
  - Serotonin syndrome [Recovering/Resolving]

NARRATIVE: CASE EVENT DATE: 20200815
